FAERS Safety Report 5951997-X (Version None)
Quarter: 2008Q4

REPORT INFORMATION
  Report Type: 
  Country: None (occurrence: None)
  Receive Date: 20081113
  Receipt Date: 20071026
  Transmission Date: 20090506
  Serious: No
  Sender: FDA-Public Use
  Company Number: A0690644A

PATIENT
  Age: 57 Year
  Sex: Female

DRUGS (2)
  1. COREG [Suspect]
     Indication: HYPERTENSION
     Dosage: 12.5MG UNKNOWN
     Route: 048
  2. COREG CR [Suspect]
     Indication: HYPERTENSION
     Dosage: 40MG PER DAY
     Route: 048

REACTIONS (2)
  - ADVERSE EVENT [None]
  - ORTHOSTATIC HYPOTENSION [None]
